FAERS Safety Report 6919386-9 (Version None)
Quarter: 2010Q3

REPORT INFORMATION
  Report Type: 
  Country: None (occurrence: None)
  Receive Date: 20100811
  Receipt Date: 20100803
  Transmission Date: 20110219
  Serious: Yes (Hospitalization)
  Sender: FDA-Public Use
  Company Number: A0874924A

PATIENT
  Age: 51 Year
  Sex: Male

DRUGS (2)
  1. AVANDIA [Suspect]
     Dosage: 4MG PER DAY
     Route: 048
     Dates: start: 20040316, end: 20050621
  2. AVANDAMET [Suspect]
     Route: 048
     Dates: start: 20050810, end: 20051021

REACTIONS (2)
  - ACUTE MYOCARDIAL INFARCTION [None]
  - STENT PLACEMENT [None]
